FAERS Safety Report 12556345 (Version 1)
Quarter: 2016Q3

REPORT INFORMATION
  Report Type: Spontaneous
  Country: FR (occurrence: FR)
  Receive Date: 20160714
  Receipt Date: 20160714
  Transmission Date: 20161109
  Serious: Yes (Hospitalization)
  Sender: FDA-Public Use
  Company Number: FR-PFIZER INC-2016335220

PATIENT
  Age: 90 Year
  Sex: Male

DRUGS (7)
  1. ZOPICLONE [Interacting]
     Active Substance: ZOPICLONE
     Indication: INSOMNIA
     Dosage: 3.75 MG, 1X/DAY
     Route: 048
     Dates: end: 20160426
  2. NEBIVOLOL. [Concomitant]
     Active Substance: NEBIVOLOL
     Indication: MYOCARDIAL ISCHAEMIA
     Dosage: 5 MG, 1X/DAY
     Route: 048
  3. XANAX [Suspect]
     Active Substance: ALPRAZOLAM
     Indication: ANXIETY
     Dosage: 0.5 MG, 2X/DAY
     Route: 048
     Dates: end: 20160426
  4. MOVICOL [Concomitant]
     Active Substance: POLYETHYLENE GLYCOL 3350\POTASSIUM CHLORIDE\SODIUM BICARBONATE\SODIUM CHLORIDE
     Dosage: 20 MG, 1X/DAY
  5. SEROPLEX [Interacting]
     Active Substance: ESCITALOPRAM OXALATE
     Indication: DEPRESSION
     Dosage: 5 MG, 1X/DAY
     Route: 048
     Dates: start: 20160415, end: 20160426
  6. CLOPIDOGREL [Concomitant]
     Active Substance: CLOPIDOGREL BISULFATE
     Indication: MYOCARDIAL ISCHAEMIA
     Dosage: 75 MG, 1X/DAY
     Route: 048
  7. INDAPAMIDE W/PERINDOPRIL [Interacting]
     Active Substance: INDAPAMIDE\PERINDOPRIL
     Indication: HYPERTENSION
     Dosage: 0.5 DF, 1X/DAY
     Route: 048
     Dates: end: 20160426

REACTIONS (3)
  - Drug interaction [Recovering/Resolving]
  - Confusional state [Recovered/Resolved]
  - Hyponatraemia [Recovering/Resolving]

NARRATIVE: CASE EVENT DATE: 20160426
